FAERS Safety Report 4964752-4 (Version None)
Quarter: 2006Q2

REPORT INFORMATION
  Report Type: 
  Country: None (occurrence: None)
  Receive Date: 20060406
  Receipt Date: 20060329
  Transmission Date: 20061013
  Serious: Yes (Death, Other)
  Sender: FDA-Public Use
  Company Number: FR-NOVOPROD-252026

PATIENT
  Age: 58 Year
  Sex: Male

DRUGS (7)
  1. INSULATARD PENFILL [Suspect]
     Indication: DIABETES MELLITUS
     Dosage: 25 IU MORNING + 15 IU EVENING
     Dates: start: 20060121, end: 20060203
  2. IMOVANE [Concomitant]
     Dosage: 7.5 MG, QD
     Dates: start: 20050615, end: 20060202
  3. MORPHINE SULFATE [Concomitant]
     Route: 048
     Dates: start: 20060121
  4. DETENSIEL [Concomitant]
     Dosage: 10 MG, QD
     Route: 048
     Dates: start: 20060121
  5. CONTRAMAL [Concomitant]
     Route: 048
     Dates: start: 20060121
  6. LASILIX [Concomitant]
     Dosage: 40 MG, QD
     Route: 048
     Dates: start: 20060128, end: 20060130
  7. DI-ANTALVIC [Concomitant]

REACTIONS (4)
  - BLOOD GLUCOSE FALSE POSITIVE [None]
  - DEATH [None]
  - DEVICE MALFUNCTION [None]
  - HYPOGLYCAEMIA [None]
